FAERS Safety Report 5406981-1 (Version None)
Quarter: 2007Q3

REPORT INFORMATION
  Report Type: 
  Country: None (occurrence: None)
  Receive Date: 20070803
  Receipt Date: 20070803
  Transmission Date: 20080115
  Serious: Yes (Hospitalization)
  Sender: FDA-Public Use
  Company Number: None

PATIENT
  Age: 52 Year
  Sex: Male

DRUGS (2)
  1. LITHIUM CARBONATE [Suspect]
     Indication: SCHIZOAFFECTIVE DISORDER
     Dosage: 300MG/600MG QAM/QPM PO
     Route: 048
     Dates: start: 19961122, end: 20070801
  2. PROPRANOLOL [Suspect]
     Dosage: 20MG BID PO
     Route: 048
     Dates: start: 20070620, end: 20070701

REACTIONS (5)
  - BRADYCARDIA [None]
  - CHEST PAIN [None]
  - DIZZINESS [None]
  - TREMOR [None]
  - VISION BLURRED [None]
